FAERS Safety Report 9034638 (Version 2)
Quarter: 2013Q1

REPORT INFORMATION
  Report Type: Spontaneous
  Country: US (occurrence: US)
  Receive Date: 20130128
  Receipt Date: 20130213
  Transmission Date: 20140127
  Serious: Yes (Death)
  Sender: FDA-Public Use
  Company Number: US-GLAXOSMITHKLINE-A1009009A

PATIENT
  Age: 61 Year
  Sex: Female

DRUGS (5)
  1. TYKERB [Suspect]
     Indication: BREAST CANCER
     Dosage: 4TAB PER DAY
     Route: 048
     Dates: start: 201201
  2. HERCEPTIN [Concomitant]
  3. DEXAMETHASONE [Concomitant]
  4. POTASSIUM [Concomitant]
  5. LORTAB [Concomitant]

REACTIONS (1)
  - Death [Fatal]
